FAERS Safety Report 10494474 (Version 1)
Quarter: 2014Q4

REPORT INFORMATION
  Report Type: Spontaneous
  Country: US (occurrence: None)
  Receive Date: 20141002
  Receipt Date: 20141002
  Transmission Date: 20150528
  Serious: Yes (Other)
  Sender: FDA-Public Use
  Company Number: None

PATIENT
  Age: 6 Year
  Sex: Female
  Weight: 23.5 kg

DRUGS (1)
  1. LEVETERACITAM [Suspect]
     Active Substance: LEVETIRACETAM
     Indication: SEIZURE
     Route: 048
     Dates: start: 2013

REACTIONS (5)
  - Seizure [None]
  - Product substitution issue [None]
  - Vomiting [None]
  - No therapeutic response [None]
  - Therapeutic response changed [None]

NARRATIVE: CASE EVENT DATE: 20140101
